FAERS Safety Report 9815874 (Version 1)
Quarter: 2014Q1

REPORT INFORMATION
  Report Type: Spontaneous
  Country: US (occurrence: US)
  Receive Date: 20140114
  Receipt Date: 20140114
  Transmission Date: 20141002
  Serious: No
  Sender: FDA-Public Use
  Company Number: US-PFIZER INC-2014009100

PATIENT
  Age: 44 Year
  Sex: Female
  Weight: 67.12 kg

DRUGS (5)
  1. LYRICA [Suspect]
     Indication: PAIN
     Dosage: UNK
     Route: 048
     Dates: start: 20071225
  2. LYRICA [Suspect]
     Dosage: 75 MG, 3X/DAY
     Route: 048
     Dates: start: 2012
  3. TOPAMAX [Suspect]
     Indication: MIGRAINE
     Dosage: 25 MG, UNK
     Route: 048
     Dates: start: 2012, end: 201305
  4. MOTRIN [Concomitant]
     Dosage: UNK (ONCE IN A BLUE MOON WHEN REQUIRED)
  5. COPAXONE [Concomitant]
     Dosage: UNK

REACTIONS (1)
  - Malaise [Not Recovered/Not Resolved]
